FAERS Safety Report 4840881-0 (Version None)
Quarter: 2005Q4

REPORT INFORMATION
  Report Type: 
  Country: None (occurrence: None)
  Receive Date: 20051027
  Receipt Date: 20050315
  Transmission Date: 20060501
  Serious: Yes (Other)
  Sender: FDA-Public Use
  Company Number: HQWYE178918MAR05

PATIENT
  Age: 55 Year
  Sex: Female
  Weight: 30.89 kg

DRUGS (2)
  1. PREMARIN [Suspect]
     Indication: HOT FLUSH
  2. SYNTHROID [Concomitant]

REACTIONS (1)
  - BREAST CANCER [None]
